FAERS Safety Report 22952799 (Version 4)
Quarter: 2023Q4

REPORT INFORMATION
  Report Type: Spontaneous
  Country: US (occurrence: US)
  Receive Date: 20230918
  Receipt Date: 20231207
  Transmission Date: 20240110
  Serious: Yes (Hospitalization, Other)
  Sender: FDA-Public Use
  Company Number: US-SA-SAC20230914000697

PATIENT
  Age: 17 Year
  Sex: Male

DRUGS (1)
  1. FABRAZYME [Suspect]
     Active Substance: AGALSIDASE BETA
     Indication: Fabry^s disease
     Dosage: 100 MG (STRENGTH 5 MG AT DOSE 30 MG+STRENGTH 35 MG AT A DOSE OF 70 MG), QOW (IN 250ML NORMAL SALINE
     Route: 042
     Dates: start: 202007

REACTIONS (2)
  - Renal failure [Unknown]
  - Renal transplant [Unknown]

NARRATIVE: CASE EVENT DATE: 20230829
